FAERS Safety Report 5110383-5 (Version None)
Quarter: 2006Q3

REPORT INFORMATION
  Report Type: 
  Country: None (occurrence: None)
  Receive Date: 20060921
  Receipt Date: 20060912
  Transmission Date: 20061208
  Serious: Yes (Other)
  Sender: FDA-Public Use
  Company Number: CN-SANOFI-SYNTHELABO-A01200607483

PATIENT
  Sex: Male

DRUGS (1)
  1. STILNOX [Suspect]
     Indication: INSOMNIA
     Route: 048

REACTIONS (1)
  - MYASTHENIA GRAVIS [None]
